FAERS Safety Report 15457919 (Version 1)
Quarter: 2018Q4

REPORT INFORMATION
  Report Type: Spontaneous
  Country: SE (occurrence: SE)
  Receive Date: 20181003
  Receipt Date: 20181003
  Transmission Date: 20190204
  Serious: Yes (Other)
  Sender: FDA-Public Use
  Company Number: SE-ROCHE-2192506

PATIENT
  Sex: Male
  Weight: 3.61 kg

DRUGS (2)
  1. NORTRIPTYLINE HYDROCHLORIDE. [Suspect]
     Active Substance: NORTRIPTYLINE HYDROCHLORIDE
     Indication: PRODUCT USED FOR UNKNOWN INDICATION
     Route: 064
  2. DIAZEPAM. [Suspect]
     Active Substance: DIAZEPAM
     Indication: PRODUCT USED FOR UNKNOWN INDICATION
     Route: 064

REACTIONS (6)
  - Electrocardiogram T wave abnormal [Recovered/Resolved]
  - Foetal exposure during pregnancy [Unknown]
  - Electrocardiogram QRS complex prolonged [Recovered/Resolved]
  - Hyporesponsive to stimuli [Unknown]
  - Electrocardiogram ST segment depression [Recovered/Resolved]
  - Hypotonia [Unknown]
